FAERS Safety Report 21940040 (Version 1)
Quarter: 2023Q1

REPORT INFORMATION
  Report Type: Spontaneous
  Country: US (occurrence: US)
  Receive Date: 20230201
  Receipt Date: 20230201
  Transmission Date: 20230417
  Serious: Yes (Other)
  Sender: FDA-Public Use
  Company Number: US-AMGEN-USASP2023015556

PATIENT
  Age: 71 Year
  Sex: Male

DRUGS (1)
  1. RITUXIMAB [Suspect]
     Active Substance: RITUXIMAB
     Indication: Anti-neutrophil cytoplasmic antibody positive vasculitis
     Dosage: UNK
     Route: 065

REACTIONS (6)
  - Amyloid arthropathy [Unknown]
  - Periprosthetic metallosis [Unknown]
  - Gout [Unknown]
  - Joint capsule rupture [Unknown]
  - Post procedural swelling [Unknown]
  - Off label use [Unknown]
